FAERS Safety Report 5256477-5 (Version None)
Quarter: 2007Q1

REPORT INFORMATION
  Report Type: 
  Country: None (occurrence: None)
  Receive Date: 20070306
  Receipt Date: 20070305
  Transmission Date: 20070707
  Serious: Yes (Other)
  Sender: FDA-Public Use
  Company Number: 2007-002013

PATIENT
  Age: 39 Year
  Sex: Male
  Weight: 73 kg

DRUGS (5)
  1. FLOLAN [Suspect]
     Dosage: 50NGKM UNKNOWN
     Route: 042
     Dates: start: 20010628
  2. DIGOXIN [Concomitant]
     Dosage: .125MG PER DAY
     Route: 048
  3. IMODIUM [Concomitant]
     Dosage: 2MG TWICE PER DAY
     Route: 048
  4. COUMADIN [Concomitant]
     Dosage: 5MG PER DAY
  5. ATENOLOL [Concomitant]
     Dosage: 2.5MG PER DAY
     Route: 048

REACTIONS (2)
  - CATHETER RELATED COMPLICATION [None]
  - PHARMACEUTICAL PRODUCT COMPLAINT [None]
